FAERS Safety Report 9474837 (Version 1)
Quarter: 2013Q3

REPORT INFORMATION
  Report Type: Spontaneous
  Country: JP (occurrence: JP)
  Receive Date: 20130823
  Receipt Date: 20130823
  Transmission Date: 20140515
  Serious: Yes (Death, Hospitalization)
  Sender: FDA-Public Use
  Company Number: PHHY2013JP090967

PATIENT
  Age: 95 Year
  Sex: Male

DRUGS (8)
  1. METHYLPREDNISOLONE [Suspect]
     Indication: ACUTE LUNG INJURY
     Dosage: 500 MG, DAILY
  2. METHYLPREDNISOLONE [Suspect]
     Indication: PNEUMONIA
     Dosage: 1000 MG, DAILY
  3. METHYLPREDNISOLONE [Suspect]
     Dosage: 1000 MG, DAILY
  4. PREDNISOLONE [Suspect]
     Indication: ACUTE LUNG INJURY
     Dosage: 40 MG, DAILY
  5. PREDNISOLONE [Suspect]
     Indication: PNEUMONIA
     Dosage: 60 MG, DAILY
  6. PREDNISOLONE [Suspect]
     Dosage: 60 MG, DAILY
  7. CEFTRIAXONE [Concomitant]
  8. COTRIMOXAZOLE [Concomitant]
     Indication: PROPHYLAXIS

REACTIONS (11)
  - Multi-organ failure [Fatal]
  - Bronchopulmonary aspergillosis [Fatal]
  - Pyrexia [Fatal]
  - Pleural effusion [Fatal]
  - Dyspnoea [Fatal]
  - Pneumocystis jirovecii pneumonia [Fatal]
  - Hypoxia [Fatal]
  - Depressed level of consciousness [Unknown]
  - Hypocomplementaemia [Unknown]
  - Hypoalbuminaemia [Unknown]
  - General physical health deterioration [Unknown]
